FAERS Safety Report 7865758-8 (Version None)
Quarter: 2011Q4

REPORT INFORMATION
  Report Type: 
  Country: None (occurrence: None)
  Receive Date: 20111028
  Receipt Date: 20110218
  Transmission Date: 20120403
  Serious: No
  Sender: FDA-Public Use
  Company Number: US-GLAXOSMITHKLINE-A0914442A

PATIENT
  Age: 83 Year
  Sex: Male

DRUGS (6)
  1. ASPIRIN [Concomitant]
  2. CLOPIDOGREL [Concomitant]
  3. ISOSORBIDE DINITRATE [Concomitant]
  4. DILTIAZEM HCL [Concomitant]
  5. SIMVASTATIN [Concomitant]
  6. ADVAIR DISKUS 100/50 [Suspect]
     Indication: CHRONIC OBSTRUCTIVE PULMONARY DISEASE
     Dosage: 1PUFF TWICE PER DAY
     Route: 055
     Dates: start: 20110101

REACTIONS (1)
  - TOOTH DISCOLOURATION [None]
